FAERS Safety Report 7677605-8 (Version None)
Quarter: 2011Q3

REPORT INFORMATION
  Report Type: 
  Country: None (occurrence: None)
  Receive Date: 20110811
  Receipt Date: 20110811
  Transmission Date: 20111222
  Serious: Yes (Other)
  Sender: FDA-Public Use
  Company Number: None

PATIENT
  Sex: Male
  Weight: 59 kg

DRUGS (3)
  1. THALIDOMIDE [Suspect]
     Dosage: 100MG
  2. DRONABINOL [Concomitant]
  3. FUROSEMIDE [Concomitant]

REACTIONS (2)
  - IDIOSYNCRATIC DRUG REACTION [None]
  - FALL [None]
